FAERS Safety Report 14854943 (Version 1)
Quarter: 2018Q2

REPORT INFORMATION
  Report Type: Spontaneous
  Country: US (occurrence: US)
  Receive Date: 20180507
  Receipt Date: 20180507
  Transmission Date: 20180711
  Serious: No
  Sender: FDA-Public Use
  Company Number: US-ROCHE-1911152

PATIENT

DRUGS (2)
  1. ESBRIET [Suspect]
     Active Substance: PIRFENIDONE
     Route: 048
  2. ESBRIET [Suspect]
     Active Substance: PIRFENIDONE
     Indication: IDIOPATHIC PULMONARY FIBROSIS
     Route: 048

REACTIONS (10)
  - Decreased appetite [Unknown]
  - Productive cough [Unknown]
  - Abdominal discomfort [Unknown]
  - Cough [Unknown]
  - Treatment noncompliance [Unknown]
  - Retching [Unknown]
  - Vomiting [Unknown]
  - Weight decreased [Unknown]
  - Dyspepsia [Unknown]
  - Pruritus generalised [Unknown]
